FAERS Safety Report 7471555-8 (Version None)
Quarter: 2011Q2

REPORT INFORMATION
  Report Type: 
  Country: None (occurrence: None)
  Receive Date: 20110511
  Receipt Date: 20101210
  Transmission Date: 20111010
  Serious: Yes (Hospitalization, Other)
  Sender: FDA-Public Use
  Company Number: US-BAYER-201027977NA

PATIENT
  Age: 23 Year
  Sex: Female
  Weight: 90 kg

DRUGS (15)
  1. PHENERGAN HCL [Concomitant]
     Dosage: UNK UNK, PRN
  2. FLAGYL [Concomitant]
  3. EFFEXOR [Concomitant]
  4. FLEXERIL [Concomitant]
  5. NAPROSYN [Concomitant]
  6. METRONIDAZOLE [Concomitant]
     Dosage: UNK
     Dates: start: 20070626
  7. YASMIN [Suspect]
     Dosage: UNK
     Dates: start: 20041127, end: 20070601
  8. ACETAMINOPHEN [Concomitant]
  9. MAXALT [Concomitant]
     Dosage: UNK UNK, PRN
  10. TOPAMAX [Concomitant]
  11. VALIUM [Concomitant]
  12. MEPERIDINE [Concomitant]
     Indication: PAIN
     Dosage: UNK
     Dates: start: 20070605
  13. NAPROXEN [Concomitant]
     Indication: PAIN
     Dosage: UNK
     Dates: start: 20070611
  14. YASMIN [Suspect]
     Indication: CONTRACEPTION
     Route: 048
     Dates: start: 20041101, end: 20070627
  15. MEPERGAN [Concomitant]

REACTIONS (11)
  - HAEMORRHAGIC CEREBRAL INFARCTION [None]
  - CRYING [None]
  - HIGH RISK PREGNANCY [None]
  - TRANSVERSE SINUS THROMBOSIS [None]
  - JUGULAR VEIN THROMBOSIS [None]
  - LOSS OF CONSCIOUSNESS [None]
  - APHASIA [None]
  - CEREBROVASCULAR ACCIDENT [None]
  - BRAIN INJURY [None]
  - VOMITING [None]
  - DEPRESSION [None]
